FAERS Safety Report 7617370-3 (Version None)
Quarter: 2011Q3

REPORT INFORMATION
  Report Type: 
  Country: None (occurrence: None)
  Receive Date: 20110718
  Receipt Date: 20110713
  Transmission Date: 20111222
  Serious: Yes (Other)
  Sender: FDA-Public Use
  Company Number: US-PFIZER INC-2011159099

PATIENT
  Sex: Male
  Weight: 92 kg

DRUGS (6)
  1. CADUET [Suspect]
     Indication: HYPERTENSION
  2. ZETIA [Concomitant]
     Indication: CARDIAC DISORDER
     Dosage: 10 MG, 1X/DAY
     Route: 048
  3. NEXIUM [Concomitant]
     Indication: CARDIAC DISORDER
     Dosage: 40 MG, DAILY
     Route: 048
  4. CADUET [Suspect]
     Indication: MYOCARDIAL INFARCTION
     Dosage: [AMLODIPINE BESYLATE 10 MG/ ATORVASTATIN CALCIUM 40 MG], ONCE DAILY
     Dates: end: 20110601
  5. ACETYLSALICYLIC ACID [Concomitant]
     Indication: CARDIAC DISORDER
     Dosage: 300 MG, DAILY
     Route: 048
  6. HYDROCHLOROTHIAZIDE [Concomitant]
     Indication: CARDIAC DISORDER
     Dosage: 25 MG, DAILY
     Route: 048

REACTIONS (3)
  - SLUGGISHNESS [None]
  - FATIGUE [None]
  - HYPERTENSION [None]
